FAERS Safety Report 8163091 (Version 3)
Quarter: 2013Q4

REPORT INFORMATION
  Report Type: Report from Study
  Country: US (occurrence: US)
  Receive Date: 20110930
  Receipt Date: 20131110
  Transmission Date: 20140711
  Serious: Yes (Death, Hospitalization, Other)
  Sender: FDA-Public Use
  Company Number: PHHO2011US15502

PATIENT
  Sex: Female
  Weight: 57 kg

DRUGS (3)
  1. AFINITOR [Suspect]
     Indication: GLIOBLASTOMA
     Dosage: 350 MG, UNK
     Route: 048
     Dates: start: 20110803, end: 20110831
  2. TEMOZOLOMIDE [Suspect]
     Indication: GLIOBLASTOMA
     Dosage: 2750 MG, UNK
     Dates: start: 20110803, end: 20110831
  3. DEXAMETHASONE [Suspect]
     Dosage: 1 MG, QD

REACTIONS (5)
  - Lung infection [Fatal]
  - Febrile neutropenia [Fatal]
  - Lymphocyte count decreased [Fatal]
  - Platelet count decreased [Fatal]
  - White blood cell count decreased [Fatal]
